FAERS Safety Report 8325178-9 (Version None)
Quarter: 2012Q2

REPORT INFORMATION
  Report Type: 
  Country: None (occurrence: None)
  Receive Date: 20120427
  Receipt Date: 20120418
  Transmission Date: 20120825
  Serious: Yes (Other)
  Sender: FDA-Public Use
  Company Number: 2012SP020758

PATIENT
  Age: 12 Year
  Sex: Male

DRUGS (1)
  1. DULERA [Suspect]
     Indication: ASTHMA
     Dosage: 2 DF;BID;INH
     Route: 055

REACTIONS (3)
  - TREMOR [None]
  - NAUSEA [None]
  - BLINDNESS UNILATERAL [None]
